FAERS Safety Report 5408516-6 (Version None)
Quarter: 2007Q3

REPORT INFORMATION
  Report Type: 
  Country: None (occurrence: None)
  Receive Date: 20070808
  Receipt Date: 20070801
  Transmission Date: 20080115
  Serious: Yes (Other)
  Sender: FDA-Public Use
  Company Number: CH-BRISTOL-MYERS SQUIBB COMPANY-13829023

PATIENT
  Age: 53 Year
  Sex: Male

DRUGS (4)
  1. ERBITUX [Suspect]
     Indication: SQUAMOUS CELL CARCINOMA
     Dosage: LOADING DOSE- 09-MAY-07- 400MG/M2 THAN 250MG/M2(WEEKLY); 20-JUN-07- ONGOING 250MG/M2, 1 IN 1 WEEK.
     Route: 042
     Dates: start: 20070509, end: 20070606
  2. ETHYOL [Interacting]
     Indication: PROPHYLAXIS
     Route: 058
     Dates: start: 20070516, end: 20070523
  3. RADIATION THERAPY [Concomitant]
     Indication: SQUAMOUS CELL CARCINOMA
     Dates: start: 20070515, end: 20070627
  4. CISPLATIN [Concomitant]
     Indication: SQUAMOUS CELL CARCINOMA
     Route: 042
     Dates: start: 20070516, end: 20070627

REACTIONS (3)
  - DRUG INTERACTION [None]
  - RECALL PHENOMENON [None]
  - SKIN REACTION [None]
